FAERS Safety Report 4707351-1 (Version None)
Quarter: 2005Q3

REPORT INFORMATION
  Report Type: 
  Country: None (occurrence: None)
  Receive Date: 20050705
  Receipt Date: 20050616
  Transmission Date: 20060218
  Serious: Yes (Other)
  Sender: FDA-Public Use
  Company Number: TRP_0139_2005

PATIENT
  Age: 58 Year
  Sex: Female

DRUGS (5)
  1. RIBASPHERE [Suspect]
     Indication: HEPATITIS C
     Dosage: DF PO
     Route: 048
     Dates: start: 20050502
  2. PEG-INTRON [Suspect]
     Indication: HEPATITIS C
     Dosage: 120 MCG QWK SC
     Route: 058
     Dates: start: 20050506
  3. EFFEXOR [Concomitant]
  4. LEVOTHYROXINE [Concomitant]
  5. NEURONTIN [Concomitant]

REACTIONS (4)
  - DYSKINESIA [None]
  - FEAR [None]
  - FEELING ABNORMAL [None]
  - PARANOIA [None]
